FAERS Safety Report 26060895 (Version 1)
Quarter: 2025Q4

REPORT INFORMATION
  Report Type: Spontaneous
  Country: US (occurrence: US)
  Receive Date: 20251118
  Receipt Date: 20251118
  Transmission Date: 20260118
  Serious: Yes (Other)
  Sender: SANDOZ
  Company Number: US-SANDOZ-SDZ2025US085005

PATIENT
  Age: 16 Year
  Sex: Male

DRUGS (1)
  1. NELARABINE [Suspect]
     Active Substance: NELARABINE
     Indication: T-cell type acute leukaemia
     Dosage: UNK
     Route: 065

REACTIONS (3)
  - Neurotoxicity [Recovering/Resolving]
  - Guillain-Barre syndrome [Recovering/Resolving]
  - Delirium [Unknown]
